FAERS Safety Report 4658410-3 (Version None)
Quarter: 2005Q2

REPORT INFORMATION
  Report Type: 
  Country: None (occurrence: None)
  Receive Date: 20050509
  Receipt Date: 20050425
  Transmission Date: 20051028
  Serious: Yes (Other)
  Sender: FDA-Public Use
  Company Number: 2005066175

PATIENT
  Sex: Female
  Weight: 72.5755 kg

DRUGS (4)
  1. BEXTRA [Suspect]
     Indication: ARTHRITIS
     Dosage: 20 MG, AS NECESSARY, ORAL
     Route: 048
     Dates: start: 20020901
  2. CELEBREX [Suspect]
     Indication: ARTHRITIS
     Dosage: ORAL
     Route: 048
     Dates: start: 20020101, end: 20020101
  3. CORTISONE ACETATE [Suspect]
     Indication: INFLAMMATION
     Dosage: ORAL
     Route: 048
  4. CORTISONE ACETATE [Suspect]
     Indication: SWELLING
     Dosage: ORAL
     Route: 048

REACTIONS (16)
  - ABDOMINAL DISTENSION [None]
  - CHEST PAIN [None]
  - CHOKING [None]
  - CONDITION AGGRAVATED [None]
  - DRUG HYPERSENSITIVITY [None]
  - DRUG INEFFECTIVE [None]
  - DYSPHAGIA [None]
  - GASTRIC ULCER [None]
  - GASTROOESOPHAGEAL REFLUX DISEASE [None]
  - IMPAIRED HEALING [None]
  - INCREASED UPPER AIRWAY SECRETION [None]
  - OESOPHAGEAL ULCER [None]
  - RETCHING [None]
  - SWELLING [None]
  - URTICARIA [None]
  - VOMITING [None]
